FAERS Safety Report 16315613 (Version 1)
Quarter: 2019Q2

REPORT INFORMATION
  Report Type: Spontaneous
  Country: GB (occurrence: GB)
  Receive Date: 20190515
  Receipt Date: 20190515
  Transmission Date: 20190711
  Serious: Yes (Other)
  Sender: FDA-Public Use
  Company Number: GB-NOVOPROD-661062

PATIENT
  Age: 65 Year
  Sex: Female
  Weight: 111 kg

DRUGS (8)
  1. LANSOPRAZOLE. [Concomitant]
     Active Substance: LANSOPRAZOLE
     Dosage: 60 MG, QD
     Dates: start: 20180314
  2. FLUPENTIXOL [Concomitant]
     Active Substance: FLUPENTIXOL
     Dosage: 1  BIW
     Route: 051
     Dates: start: 20180310
  3. FERROUS FUMARATE [Concomitant]
     Active Substance: FERROUS FUMARATE
     Dosage: 420 MG, QD
     Dates: start: 20180314
  4. LIRAGLUTIDE [Suspect]
     Active Substance: LIRAGLUTIDE
     Indication: DIABETES MELLITUS
     Dosage: 0.6 MG
     Route: 058
     Dates: end: 20181214
  5. ACETYLSALICYLIC ACID [Concomitant]
     Active Substance: ASPIRIN
     Dosage: 75 MG, QD
     Dates: start: 20180314
  6. PARACETAMOL [Concomitant]
     Active Substance: ACETAMINOPHEN
     Dosage: TAKE 1-2 FOUR TIMES DAILY
     Dates: start: 20180310
  7. GAVISCON ADVANCED [Concomitant]
     Dosage: 20 ML, QD
     Route: 048
     Dates: start: 20180301
  8. LITHIUM CARBONATE. [Concomitant]
     Active Substance: LITHIUM CARBONATE
     Dosage: 2 QD (NIGHT)
     Dates: start: 20180314

REACTIONS (2)
  - Diarrhoea [Recovered/Resolved]
  - Acidosis [Recovered/Resolved]
